FAERS Safety Report 8851663 (Version 2)
Quarter: 2012Q4

REPORT INFORMATION
  Report Type: 
  Country: US (occurrence: US)
  Receive Date: 20121022
  Receipt Date: 20121104
  Transmission Date: 20130627
  Serious: Yes (Hospitalization, Other)
  Sender: FDA-Public Use
  Company Number: US-MERCK-1210USA006655

PATIENT
  Sex: Male

DRUGS (4)
  1. PEGINTRON [Suspect]
     Indication: HEPATITIS C
     Dosage: 0.5 ml, UNK
     Dates: start: 20121001
  2. PEGINTRON [Suspect]
     Dosage: 0.3 ml, UNK
     Dates: end: 20121027
  3. RIBAVIRIN [Suspect]
     Indication: HEPATITIS C
     Dosage: UNK
     Dates: start: 20121002, end: 20121027
  4. TELAVIC [Suspect]
     Indication: HEPATITIS C
     Dosage: UNK
     Dates: start: 20121002, end: 20121027

REACTIONS (21)
  - Migraine [Unknown]
  - Blood pressure increased [Unknown]
  - Muscle tightness [Unknown]
  - Skin warm [Unknown]
  - Influenza [Unknown]
  - Injection site erythema [Unknown]
  - Fatigue [Not Recovered/Not Resolved]
  - Headache [Unknown]
  - Diarrhoea [Unknown]
  - Constipation [Unknown]
  - Insomnia [Unknown]
  - Haemorrhoids [Unknown]
  - Rash pruritic [Unknown]
  - Depression [Unknown]
  - Affect lability [Unknown]
  - Chest discomfort [Unknown]
  - Dyspnoea [Unknown]
  - Chest pain [Unknown]
  - Blood pressure increased [Unknown]
  - Depression [Unknown]
  - Emotional disorder [Unknown]
